FAERS Safety Report 9337403 (Version 2)
Quarter: 2013Q3

REPORT INFORMATION
  Report Type: Report from Study
  Country: AU (occurrence: AU)
  Receive Date: 20130607
  Receipt Date: 20130725
  Transmission Date: 20140515
  Serious: Yes (Hospitalization)
  Sender: FDA-Public Use
  Company Number: AU-CELGENEUS-008-21880-13054266

PATIENT
  Age: 67 Year
  Sex: Male

DRUGS (5)
  1. REVLIMID [Suspect]
     Indication: MYCOSIS FUNGOIDES
     Dosage: 10 MILLIGRAM
     Route: 048
     Dates: start: 20130416, end: 20130527
  2. REVLIMID [Suspect]
     Dosage: 10 MILLIGRAM
     Route: 048
     Dates: start: 20130611
  3. ROMIDEPSIN [Suspect]
     Indication: HODGKIN^S DISEASE
     Dosage: DAY 1,8,15 EVERY 28 DAYS
     Route: 065
     Dates: start: 20130416
  4. ROMIDEPSIN [Suspect]
     Indication: T-CELL LYMPHOMA
  5. ROMIDEPSIN [Suspect]
     Indication: PLASMA CELL MYELOMA

REACTIONS (1)
  - Dermatitis exfoliative [Recovered/Resolved]
